FAERS Safety Report 21396207 (Version 1)
Quarter: 2022Q3

REPORT INFORMATION
  Report Type: Report from Study
  Country: US (occurrence: US)
  Receive Date: 20220930
  Receipt Date: 20220930
  Transmission Date: 20221027
  Serious: Yes (Hospitalization)
  Sender: FDA-Public Use
  Company Number: US-SERVIER-S22009905

PATIENT

DRUGS (4)
  1. PEGASPARGASE [Suspect]
     Active Substance: PEGASPARGASE
     Indication: Acute lymphocytic leukaemia
     Dosage: 2000 IU/M2, ONE DOSE, ON D2
     Route: 042
     Dates: start: 20220824, end: 20220824
  2. METHOTREXATE [Suspect]
     Active Substance: METHOTREXATE
     Indication: Acute lymphocytic leukaemia
     Dosage: ESCALATING DOSE STARTING WITH 100 MG/M2 ON D1, D11
     Route: 042
     Dates: start: 20220823, end: 20220902
  3. VINCRISTINE [Suspect]
     Active Substance: VINCRISTINE
     Indication: Acute lymphocytic leukaemia
     Dosage: 1.5 MG/M2, ON D1, D11, D21, D31,
     Route: 042
     Dates: start: 20220823, end: 20220902
  4. INOTUZUMAB OZOGAMICIN [Suspect]
     Active Substance: INOTUZUMAB OZOGAMICIN
     Indication: Acute lymphocytic leukaemia
     Dosage: 0.5 MG/M2, QD, ON D1, D8 AND D15 D
     Route: 042
     Dates: start: 20220418, end: 20220509

REACTIONS (1)
  - Stomatitis [Not Recovered/Not Resolved]
